FAERS Safety Report 17891375 (Version 1)
Quarter: 2020Q2

REPORT INFORMATION
  Report Type: Spontaneous
  Country: IN (occurrence: IN)
  Receive Date: 20200612
  Receipt Date: 20200612
  Transmission Date: 20200714
  Serious: Yes (Other)
  Sender: FDA-Public Use
  Company Number: IN-ALLERGAN-2022990US

PATIENT

DRUGS (2)
  1. OZURDEX [Suspect]
     Active Substance: DEXAMETHASONE
     Indication: RETINAL THICKENING
  2. OZURDEX [Suspect]
     Active Substance: DEXAMETHASONE
     Indication: VISUAL ACUITY REDUCED
     Dosage: 0.7 MG, SINGLE
     Route: 031

REACTIONS (3)
  - Off label use [Unknown]
  - Visual acuity reduced [Unknown]
  - Optic atrophy [Unknown]
